FAERS Safety Report 4965047-5 (Version None)
Quarter: 2006Q2

REPORT INFORMATION
  Report Type: 
  Country: None (occurrence: None)
  Receive Date: 20060403
  Receipt Date: 20060322
  Transmission Date: 20061013
  Serious: Yes (Hospitalization)
  Sender: FDA-Public Use
  Company Number: ST-2006-008938

PATIENT
  Age: 65 Year
  Sex: Female

DRUGS (8)
  1. OLMETEC [Suspect]
     Indication: HYPERTENSION
     Dosage: 40 MG QD PO
     Route: 048
     Dates: start: 20060208, end: 20060308
  2. ASPIRIN [Concomitant]
  3. LIPITOR [Concomitant]
  4. ADALAT [Concomitant]
  5. ASPARA K [Concomitant]
  6. MELBIN [Concomitant]
  7. LOPRESSOR [Concomitant]
  8. STARSIS [Concomitant]

REACTIONS (3)
  - ALANINE AMINOTRANSFERASE INCREASED [None]
  - ASPARTATE AMINOTRANSFERASE INCREASED [None]
  - HEPATIC FUNCTION ABNORMAL [None]
